FAERS Safety Report 7522221-1 (Version None)
Quarter: 2011Q2

REPORT INFORMATION
  Report Type: 
  Country: None (occurrence: None)
  Receive Date: 20110603
  Receipt Date: 20110526
  Transmission Date: 20111010
  Serious: Yes (Other)
  Sender: FDA-Public Use
  Company Number: JP-PFIZER INC-2011114468

PATIENT
  Age: 67 Year
  Sex: Female

DRUGS (3)
  1. CYCLOPHOSPHAMIDE [Suspect]
     Route: 042
  2. EPIRUBICIN HYDROCHLORIDE [Suspect]
     Route: 042
  3. FLUOROURACIL [Suspect]
     Route: 042

REACTIONS (1)
  - SKIN NECROSIS [None]
